FAERS Safety Report 10223141 (Version 1)
Quarter: 2014Q2

REPORT INFORMATION
  Report Type: Report from Study
  Country: US (occurrence: US)
  Receive Date: 20140608
  Receipt Date: 20140608
  Transmission Date: 20141212
  Serious: No
  Sender: FDA-Public Use
  Company Number: PHEH2014US011382

PATIENT
  Age: 50 Year
  Sex: Male

DRUGS (3)
  1. TASIGNA [Suspect]
     Indication: LEUKAEMIA
     Dosage: 200 MG, BID
     Route: 048
     Dates: start: 20120525
  2. SYNTHROID [Concomitant]
     Dosage: UNK UKN, UNK
  3. URSODIOL [Concomitant]
     Dosage: UNK UKN, UNK

REACTIONS (1)
  - Fatigue [Not Recovered/Not Resolved]
